FAERS Safety Report 14664030 (Version 1)
Quarter: 2018Q1

REPORT INFORMATION
  Report Type: Spontaneous
  Country: US (occurrence: US)
  Receive Date: 20180321
  Receipt Date: 20180321
  Transmission Date: 20180509
  Serious: No
  Sender: FDA-Public Use
  Company Number: US-BAYER-2018-054934

PATIENT
  Age: 74 Year
  Sex: Female
  Weight: 65.76 kg

DRUGS (5)
  1. NASACORT [Concomitant]
     Active Substance: TRIAMCINOLONE ACETONIDE
  2. GLUCOSAMINE [Concomitant]
     Active Substance: GLUCOSAMINE
  3. ZYRTEC [Concomitant]
     Active Substance: CETIRIZINE HYDROCHLORIDE
  4. FISH OIL [Concomitant]
     Active Substance: FISH OIL
  5. ALEVE [Suspect]
     Active Substance: NAPROXEN SODIUM
     Dosage: UNK
     Dates: start: 20180301

REACTIONS (3)
  - Pruritus [Recovered/Resolved]
  - Pain of skin [Recovered/Resolved]
  - Rash macular [Recovered/Resolved]
